FAERS Safety Report 5249201-3 (Version None)
Quarter: 2007Q1

REPORT INFORMATION
  Report Type: 
  Country: None (occurrence: None)
  Receive Date: 20070228
  Receipt Date: 20070220
  Transmission Date: 20070707
  Serious: Yes (Life-Threatening)
  Sender: FDA-Public Use
  Company Number: US-JNJFOC-20070205246

PATIENT
  Age: 30 Year
  Sex: Male

DRUGS (2)
  1. FENTANYL [Suspect]
     Indication: INTENTIONAL DRUG MISUSE
     Route: 048
  2. XANAX [Suspect]
     Indication: INTENTIONAL DRUG MISUSE
     Route: 048

REACTIONS (4)
  - DRUG DIVERSION [None]
  - INTENTIONAL DRUG MISUSE [None]
  - LOSS OF CONSCIOUSNESS [None]
  - MULTIPLE DRUG OVERDOSE [None]
